FAERS Safety Report 7311862-2 (Version None)
Quarter: 2011Q1

REPORT INFORMATION
  Report Type: 
  Country: None (occurrence: None)
  Receive Date: 20110224
  Receipt Date: 20110214
  Transmission Date: 20110831
  Serious: Yes (Disabling)
  Sender: FDA-Public Use
  Company Number: CA-JNJFOC-20101204738

PATIENT
  Sex: Female
  Weight: 90.72 kg

DRUGS (3)
  1. LISINOPRIL [Concomitant]
     Indication: HYPERTENSION
  2. LEVEMIR [Concomitant]
     Indication: DIABETES MELLITUS
     Route: 058
  3. STELARA [Suspect]
     Indication: PSORIASIS
     Route: 058

REACTIONS (1)
  - ARTHRITIS [None]
